FAERS Safety Report 17055417 (Version 1)
Quarter: 2019Q4

REPORT INFORMATION
  Report Type: Spontaneous
  Country: ES (occurrence: ES)
  Receive Date: 20191120
  Receipt Date: 20191120
  Transmission Date: 20200122
  Serious: Yes (Other)
  Sender: FDA-Public Use
  Company Number: ES-MYLANLABS-2019M1112632

PATIENT
  Age: 60 Year
  Sex: Female
  Weight: 67 kg

DRUGS (2)
  1. AMOXICILINA                        /00249601/ [Concomitant]
     Active Substance: AMOXICILLIN
     Indication: SURGERY
     Dosage: 750 MILLIGRAM, Q8H (TID)
     Route: 048
     Dates: start: 20190612, end: 20190619
  2. EPINEPHRINE. [Suspect]
     Active Substance: EPINEPHRINE
     Indication: SURGERY
     Dosage: 1 DOSAGE FORM, TOTAL
     Route: 030
     Dates: start: 20190613, end: 20190613

REACTIONS (1)
  - Drug ineffective [Recovered/Resolved]

NARRATIVE: CASE EVENT DATE: 20190613
